FAERS Safety Report 21916763 (Version 7)
Quarter: 2024Q1

REPORT INFORMATION
  Report Type: Spontaneous
  Country: US (occurrence: US)
  Receive Date: 20230126
  Receipt Date: 20240308
  Transmission Date: 20240410
  Serious: Yes (Other)
  Sender: FDA-Public Use
  Company Number: US-PFIZER INC-PV202300016729

PATIENT
  Age: 87 Year
  Sex: Male
  Weight: 72.562 kg

DRUGS (1)
  1. CIBINQO [Suspect]
     Active Substance: ABROCITINIB
     Dosage: 100 MG, DAILY
     Route: 048

REACTIONS (3)
  - Deafness [Unknown]
  - Renal impairment [Unknown]
  - Intentional product misuse [Unknown]
